FAERS Safety Report 4724987-2 (Version None)
Quarter: 2005Q3

REPORT INFORMATION
  Report Type: 
  Country: None (occurrence: None)
  Receive Date: 20050726
  Receipt Date: 20040817
  Transmission Date: 20060218
  Serious: Yes (Hospitalization)
  Sender: FDA-Public Use
  Company Number: CZ-ROCHE-411175

PATIENT
  Age: 34 Year
  Sex: Male
  Weight: 65 kg

DRUGS (13)
  1. DACLIZUMAB [Suspect]
     Route: 042
     Dates: start: 20040803
  2. DACLIZUMAB [Suspect]
     Route: 042
     Dates: end: 20040927
  3. MYCOPHENOLATE MOFETIL [Suspect]
     Route: 048
     Dates: start: 20040803
  4. MYCOPHENOLATE MOFETIL [Suspect]
     Route: 048
  5. TACROLIMUS [Suspect]
     Route: 048
     Dates: start: 20040803
  6. TACROLIMUS [Suspect]
     Route: 048
  7. PREDNISONE [Suspect]
     Route: 048
     Dates: start: 20040803
  8. PREDNISONE [Suspect]
     Route: 048
  9. VALACYCLOVIR HCL [Concomitant]
     Route: 048
     Dates: start: 20040804, end: 20041106
  10. OMEPRAZOLE [Concomitant]
     Route: 048
     Dates: start: 20040808
  11. AMLODIPINE [Concomitant]
     Route: 048
     Dates: start: 20040805
  12. METOPROLOL [Concomitant]
     Route: 048
     Dates: start: 20040805
  13. DOXAZOSIN MESYLATE [Concomitant]
     Route: 048
     Dates: start: 20040805

REACTIONS (3)
  - PYELONEPHRITIS ACUTE [None]
  - URINARY TRACT INFECTION PSEUDOMONAL [None]
  - UROSEPSIS [None]
